FAERS Safety Report 8138241-2 (Version None)
Quarter: 2012Q1

REPORT INFORMATION
  Report Type: 
  Country: None (occurrence: None)
  Receive Date: 20120213
  Receipt Date: 20120203
  Transmission Date: 20120608
  Serious: Yes (Hospitalization)
  Sender: FDA-Public Use
  Company Number: 7109336

PATIENT
  Age: 55 Year
  Sex: Female

DRUGS (3)
  1. LEVOTHYROXINE SODIUM [Suspect]
     Indication: HORMONE REPLACEMENT THERAPY
     Dosage: 50 MG (50 MG, 1 IN 1 D)
     Dates: start: 20120121
  2. AMLODIPINE [Suspect]
     Indication: HYPERTENSION
     Dosage: 10 MG (5 MG, 2 IN 1 D)
     Dates: start: 20110101
  3. REBIF [Suspect]
     Indication: MULTIPLE SCLEROSIS
     Dosage: 9.4286 MCG (22 MCG, 3 IN 1 WK), SUBCUTANEOUS
     Route: 058
     Dates: start: 20070101

REACTIONS (2)
  - DIZZINESS [None]
  - HYPERTENSION [None]
